FAERS Safety Report 5319071-3 (Version None)
Quarter: 2007Q2

REPORT INFORMATION
  Report Type: 
  Country: None (occurrence: None)
  Receive Date: 20070508
  Receipt Date: 20070427
  Transmission Date: 20071010
  Serious: Yes (Hospitalization, Other)
  Sender: FDA-Public Use
  Company Number: CHWYE551330APR07

PATIENT
  Age: 42 Year
  Sex: Female
  Weight: 56 kg

DRUGS (7)
  1. EFFEXOR [Suspect]
     Indication: DEPRESSION
     Route: 048
     Dates: start: 20060301
  2. FLURAZEPAM HCL [Concomitant]
     Dates: start: 20061201
  3. RISPERDAL [Concomitant]
     Dates: start: 20061201
  4. TEMESTA [Concomitant]
     Dates: start: 20061201
  5. DIHYDERGOT PLUS [Concomitant]
     Dosage: UNKNOWN
     Route: 048
     Dates: start: 20061101
  6. ENTUMIN [Concomitant]
     Indication: AGITATION
     Dosage: 40 MG PER DAY
     Route: 048
     Dates: start: 20061101, end: 20061201
  7. ENTUMIN [Concomitant]
     Dosage: 10 MG PER DAY
     Dates: start: 20061201

REACTIONS (8)
  - ABDOMINAL PAIN UPPER [None]
  - ALANINE AMINOTRANSFERASE INCREASED [None]
  - ANXIETY [None]
  - ASPARTATE AMINOTRANSFERASE INCREASED [None]
  - BLOOD ALKALINE PHOSPHATASE INCREASED [None]
  - C-REACTIVE PROTEIN INCREASED [None]
  - GAMMA-GLUTAMYLTRANSFERASE INCREASED [None]
  - NAUSEA [None]
